FAERS Safety Report 7279654-0 (Version None)
Quarter: 2011Q1

REPORT INFORMATION
  Report Type: 
  Country: None (occurrence: None)
  Receive Date: 20110208
  Receipt Date: 20110126
  Transmission Date: 20110831
  Serious: Yes (Death, Life-Threatening, Hospitalization)
  Sender: FDA-Public Use
  Company Number: BE-CELGENEUS-013-C5013-08030989

PATIENT
  Sex: Female
  Weight: 56 kg

DRUGS (6)
  1. CC-5013 [Suspect]
     Indication: MULTIPLE MYELOMA
     Route: 048
     Dates: start: 20080304, end: 20080313
  2. MELPHALAN [Suspect]
     Indication: MULTIPLE MYELOMA
     Route: 048
     Dates: start: 20080304, end: 20080307
  3. NEUPOGEN [Concomitant]
     Route: 065
     Dates: start: 20080301
  4. PLATELETS [Concomitant]
     Dosage: SEVERAL UNITS
     Route: 051
     Dates: start: 20080301, end: 20080301
  5. PREDNISONE [Suspect]
     Indication: MULTIPLE MYELOMA
     Route: 048
     Dates: start: 20080304, end: 20080307
  6. RED BLOOD CELLS [Concomitant]
     Route: 051
     Dates: start: 20080315, end: 20080315

REACTIONS (3)
  - CARDIOGENIC SHOCK [None]
  - MYOCARDIAL ISCHAEMIA [None]
  - PYREXIA [None]
